FAERS Safety Report 14238375 (Version 2)
Quarter: 2018Q1

REPORT INFORMATION
  Report Type: Spontaneous
  Country: US (occurrence: US)
  Receive Date: 20171130
  Receipt Date: 20180219
  Transmission Date: 20180508
  Serious: No
  Sender: FDA-Public Use
  Company Number: US-PFIZER INC-2017514871

PATIENT
  Age: 48 Year
  Sex: Male
  Weight: 90.72 kg

DRUGS (1)
  1. GABAPENTIN. [Suspect]
     Active Substance: GABAPENTIN
     Indication: NERVE INJURY
     Dosage: 20 MG, 1X/DAY (ONCE A DAY)
     Dates: start: 2004

REACTIONS (2)
  - Dizziness [Unknown]
  - Abdominal discomfort [Unknown]
